FAERS Safety Report 8083173-1 (Version None)
Quarter: 2012Q1

REPORT INFORMATION
  Report Type: 
  Country: None (occurrence: None)
  Receive Date: 20120127
  Receipt Date: 20110207
  Transmission Date: 20120608
  Serious: No
  Sender: FDA-Public Use
  Company Number: US-ABBOTT-11P-163-0704569-00

PATIENT
  Sex: Female
  Weight: 56.296 kg

DRUGS (11)
  1. MULTI-VITAMIN [Concomitant]
     Indication: VITAMIN SUPPLEMENTATION
  2. METHOTREXATE [Concomitant]
     Indication: RHEUMATOID ARTHRITIS
  3. HUMIRA [Suspect]
     Indication: RHEUMATOID ARTHRITIS
     Dates: start: 20080301
  4. LEVOTHYROXINE SODIUM [Concomitant]
     Indication: THYROID DISORDER
  5. VITAMIN D [Concomitant]
     Indication: VITAMIN SUPPLEMENTATION
  6. FOLIC ACID [Concomitant]
     Indication: VITAMIN SUPPLEMENTATION
  7. FLAX OIL [Concomitant]
     Indication: SUPPLEMENTATION THERAPY
  8. EVISTA [Concomitant]
     Indication: OSTEOPOROSIS
  9. CALCIUM [Concomitant]
     Indication: MINERAL SUPPLEMENTATION
  10. FISH OIL [Concomitant]
     Indication: SUPPLEMENTATION THERAPY
  11. LIOTHYRONINE SODIUM [Concomitant]
     Indication: THYROID DISORDER

REACTIONS (3)
  - BREAKTHROUGH PAIN [None]
  - SWELLING [None]
  - PARAESTHESIA [None]
